FAERS Safety Report 5038634-6 (Version None)
Quarter: 2006Q2

REPORT INFORMATION
  Report Type: 
  Country: None (occurrence: None)
  Receive Date: 20060628
  Receipt Date: 20060628
  Transmission Date: 20061013
  Serious: Yes (Life-Threatening, Hospitalization)
  Sender: FDA-Public Use
  Company Number: None

PATIENT
  Age: 82 Year
  Sex: Male
  Weight: 78 kg

DRUGS (1)
  1. COUMADIN [Suspect]
     Indication: DEEP VEIN THROMBOSIS
     Dosage: 4 MG DAILY ORALLY
     Route: 048
     Dates: start: 20051101

REACTIONS (4)
  - BODY TEMPERATURE DECREASED [None]
  - COAGULOPATHY [None]
  - GASTROINTESTINAL HAEMORRHAGE [None]
  - HYPOVOLAEMIC SHOCK [None]
